FAERS Safety Report 24540592 (Version 1)
Quarter: 2024Q4

REPORT INFORMATION
  Report Type: Spontaneous
  Country: CN (occurrence: CN)
  Receive Date: 20241023
  Receipt Date: 20241023
  Transmission Date: 20250115
  Serious: Yes (Hospitalization, Other)
  Sender: SANDOZ
  Company Number: CN-NOVPHSZ-PHHY2019CN075402

PATIENT
  Sex: Male
  Weight: 2.2 kg

DRUGS (7)
  1. DIAZEPAM [Suspect]
     Active Substance: DIAZEPAM
     Indication: Foetal exposure during pregnancy
     Dosage: MATERNAL DOSE: 10 MG, UNK
     Route: 064
  2. NITROGLYCERIN [Suspect]
     Active Substance: NITROGLYCERIN
     Indication: Foetal exposure during pregnancy
     Dosage: MATERNAL DOSE: 10 MG
     Route: 064
  3. LABETALOL [Suspect]
     Active Substance: LABETALOL
     Indication: Foetal exposure during pregnancy
     Dosage: MATERNAL DOSE: DOSE 100MG, Q8H
     Route: 064
  4. MAGNESIUM SULFATE [Suspect]
     Active Substance: MAGNESIUM SULFATE
     Indication: Foetal exposure during pregnancy
     Dosage: MATERNAL DOSE: 10 G, DILUTED IN 0.9% SODIUM CHLORIDE
     Route: 064
  5. MIDAZOLAM [Suspect]
     Active Substance: MIDAZOLAM
     Indication: Foetal exposure during pregnancy
     Dosage: MATERNAL DOSE: 0.05 MG/KG, IN 100 ML OF ISOTONIC SALINE
     Route: 064
  6. NIFEDIPINE [Suspect]
     Active Substance: NIFEDIPINE
     Indication: Foetal exposure during pregnancy
     Dosage: MATERNAL DOSE: DOSE 10 MG, Q6H
     Route: 064
  7. SODIUM CHLORIDE [Suspect]
     Active Substance: SODIUM CHLORIDE
     Indication: Foetal exposure during pregnancy
     Route: 064

REACTIONS (4)
  - Neonatal asphyxia [Unknown]
  - Low birth weight baby [Unknown]
  - Premature baby [Unknown]
  - Foetal exposure during pregnancy [Unknown]
